FAERS Safety Report 4734499-8 (Version None)
Quarter: 2005Q3

REPORT INFORMATION
  Report Type: 
  Country: None (occurrence: None)
  Receive Date: 20050802
  Receipt Date: 20050719
  Transmission Date: 20060218
  Serious: Yes (Hospitalization)
  Sender: FDA-Public Use
  Company Number: 198979

PATIENT
  Age: 61 Year
  Sex: Female
  Weight: 72.5755 kg

DRUGS (6)
  1. AVONEX [Suspect]
     Indication: MULTIPLE SCLEROSIS
     Dosage: SEE IMAGE, IM
     Route: 030
     Dates: start: 19970101, end: 20040101
  2. AVONEX [Suspect]
     Indication: MULTIPLE SCLEROSIS
     Dosage: SEE IMAGE, IM
     Route: 030
     Dates: start: 20040101
  3. BACLOFEN [Concomitant]
  4. CALCIUM (NOS) [Concomitant]
  5. TEGRETOL [Concomitant]
  6. PROVIGIL [Concomitant]

REACTIONS (16)
  - ASTHENIA [None]
  - BACK PAIN [None]
  - BALANCE DISORDER [None]
  - BLOOD CHOLESTEROL INCREASED [None]
  - CARPAL TUNNEL SYNDROME [None]
  - CONDITION AGGRAVATED [None]
  - HYPOTONIA [None]
  - INSOMNIA [None]
  - MULTIPLE SCLEROSIS [None]
  - MUSCULAR WEAKNESS [None]
  - MYALGIA [None]
  - NECK PAIN [None]
  - NEURALGIA [None]
  - PAIN IN EXTREMITY [None]
  - SPINAL COMPRESSION FRACTURE [None]
  - SPINAL OSTEOARTHRITIS [None]
